FAERS Safety Report 6742968-4 (Version None)
Quarter: 2010Q2

REPORT INFORMATION
  Report Type: 
  Country: None (occurrence: None)
  Receive Date: 20100527
  Receipt Date: 20100518
  Transmission Date: 20101027
  Serious: No
  Sender: FDA-Public Use
  Company Number: US-BIOGENIDEC-2010BI016719

PATIENT
  Age: 51 Year
  Sex: Female

DRUGS (4)
  1. TYSABRI [Suspect]
     Indication: MULTIPLE SCLEROSIS
     Route: 042
     Dates: start: 20050126, end: 20050201
  2. TYSABRI [Suspect]
     Route: 042
     Dates: start: 20070710
  3. AVONEX [Concomitant]
     Indication: MULTIPLE SCLEROSIS
     Route: 030
     Dates: start: 20000801, end: 20010928
  4. AVONEX [Concomitant]
     Route: 030
     Dates: start: 20040924

REACTIONS (3)
  - LOCAL SWELLING [None]
  - PAIN [None]
  - SWELLING FACE [None]
